FAERS Safety Report 23291565 (Version 1)
Quarter: 2023Q4

REPORT INFORMATION
  Report Type: Spontaneous
  Country: US (occurrence: US)
  Receive Date: 20231213
  Receipt Date: 20231213
  Transmission Date: 20240109
  Serious: No
  Sender: FDA-Public Use
  Company Number: US-ALVOGEN-2023091317

PATIENT
  Sex: Male

DRUGS (1)
  1. FENTANYL [Suspect]
     Active Substance: FENTANYL\FENTANYL CITRATE
     Indication: Back pain
     Dosage: EXPIRATION DATE: UU-JUL-2025.?MANUFACTURING DATE: 25-JUL-2022?STRENGTH: 100 MCG/HR
     Dates: start: 2022

REACTIONS (4)
  - Anaemia [Unknown]
  - Hyperhidrosis [Unknown]
  - Device adhesion issue [Unknown]
  - Device malfunction [Unknown]
